FAERS Safety Report 8566983-3 (Version None)
Quarter: 2012Q3

REPORT INFORMATION
  Report Type: 
  Country: None (occurrence: None)
  Receive Date: 20120803
  Receipt Date: 20111217
  Transmission Date: 20120928
  Serious: No
  Sender: FDA-Public Use
  Company Number: US-ABBOTT-11P-163-0884158-00

PATIENT
  Sex: Female
  Weight: 133.48 kg

DRUGS (1)
  1. NIASPAN [Suspect]
     Indication: PRODUCT USED FOR UNKNOWN INDICATION
     Dosage: AT BEDTIME
     Dates: start: 20111217

REACTIONS (6)
  - ERYTHEMA [None]
  - PRURITUS [None]
  - FACE OEDEMA [None]
  - BURNING SENSATION [None]
  - OEDEMA PERIPHERAL [None]
  - LIP SWELLING [None]
